FAERS Safety Report 22022927 (Version 1)
Quarter: 2023Q1

REPORT INFORMATION
  Report Type: Spontaneous
  Country: US (occurrence: US)
  Receive Date: 20230222
  Receipt Date: 20230222
  Transmission Date: 20230418
  Serious: Yes (Other)
  Sender: FDA-Public Use
  Company Number: US-BIOVITRUM-2023US02443

PATIENT
  Age: 37 Year
  Sex: Female

DRUGS (2)
  1. KINERET [Suspect]
     Active Substance: ANAKINRA
     Indication: Multisystem inflammatory syndrome
     Dosage: EVERY TWO DAYS
     Dates: start: 20220518
  2. KINERET [Suspect]
     Active Substance: ANAKINRA
     Dates: start: 202203

REACTIONS (5)
  - Haemorrhage [Unknown]
  - Vomiting [Unknown]
  - Haemoptysis [Unknown]
  - Off label use [Unknown]
  - Product dose omission issue [Unknown]

NARRATIVE: CASE EVENT DATE: 20220301
